FAERS Safety Report 6878250-4 (Version None)
Quarter: 2010Q3

REPORT INFORMATION
  Report Type: 
  Country: None (occurrence: None)
  Receive Date: 20100728
  Receipt Date: 20100716
  Transmission Date: 20110219
  Serious: Yes (Hospitalization)
  Sender: FDA-Public Use
  Company Number: IE-PFIZER INC-2010079926

PATIENT
  Age: 58 Year
  Sex: Male
  Weight: 122 kg

DRUGS (14)
  1. BLINDED *NO SUBJECT DRUG [Suspect]
     Indication: RENAL CELL CARCINOMA
     Dosage: 50 MG, UNK
     Route: 048
     Dates: start: 20100609, end: 20100624
  2. BLINDED *PLACEBO [Suspect]
     Indication: RENAL CELL CARCINOMA
     Dosage: 50 MG, UNK
     Route: 048
     Dates: start: 20100609, end: 20100624
  3. SUNITINIB MALATE [Suspect]
     Indication: RENAL CELL CARCINOMA
     Dosage: 50 MG, UNK
     Route: 048
     Dates: start: 20100609, end: 20100624
  4. GLUCOPHAGE [Concomitant]
     Indication: DIABETES MELLITUS
     Dosage: 850 MG, 3X/DAY
     Route: 048
  5. DIAMICRON [Concomitant]
     Indication: DIABETES MELLITUS
     Dosage: 30 MG, 2X/DAY
     Route: 048
  6. APROVEL [Concomitant]
  7. NU-SEALS [Concomitant]
  8. ACETYLSALICYLIC ACID [Concomitant]
  9. DILTIAZEM [Concomitant]
     Indication: HYPERTENSION
     Dosage: 240 MG, 2X/DAY
     Route: 048
  10. ALLOPURINOL [Concomitant]
     Dosage: 300 MG, 1X/DAY
     Route: 048
  11. TRITACE [Concomitant]
     Indication: HYPERTENSION
     Dosage: 5 MG, 1X/DAY
     Route: 048
  12. LIPITOR [Concomitant]
     Indication: HYPERCHOLESTEROLAEMIA
  13. OMACOR [Concomitant]
     Dosage: 100 MG, 1X/DAY
     Route: 048
  14. FRUSEMIDE [Concomitant]
     Indication: DIURETIC THERAPY
     Dosage: 20 MG, 1X/DAY
     Route: 048

REACTIONS (1)
  - PRESYNCOPE [None]
